FAERS Safety Report 16770682 (Version 1)
Quarter: 2019Q3

REPORT INFORMATION
  Report Type: Spontaneous
  Country: US (occurrence: US)
  Receive Date: 20190904
  Receipt Date: 20190904
  Transmission Date: 20191005
  Serious: No
  Sender: FDA-Public Use
  Company Number: US-GLAXOSMITHKLINE-US2019AMR157198

PATIENT
  Sex: Female

DRUGS (2)
  1. SORIATANE [Suspect]
     Active Substance: ACITRETIN
     Indication: PRODUCT USED FOR UNKNOWN INDICATION
     Dosage: 25 MG, UNK
     Route: 065
     Dates: start: 201902
  2. SORIATANE [Suspect]
     Active Substance: ACITRETIN
     Dosage: 10 MG, UNK
     Route: 065
     Dates: start: 2019

REACTIONS (3)
  - Skin hypertrophy [Unknown]
  - Skin ulcer [Unknown]
  - Skin exfoliation [Unknown]
